FAERS Safety Report 7605851-8 (Version None)
Quarter: 2011Q3

REPORT INFORMATION
  Report Type: 
  Country: None (occurrence: None)
  Receive Date: 20110713
  Receipt Date: 20110706
  Transmission Date: 20111222
  Serious: Yes (Life-Threatening, Other)
  Sender: FDA-Public Use
  Company Number: US-BAYER-2011-030520

PATIENT
  Age: 48 Year
  Sex: Female
  Weight: 63.492 kg

DRUGS (3)
  1. LISINOPRIL [Concomitant]
  2. HCTV [Concomitant]
  3. AVELOX [Suspect]
     Indication: RESPIRATORY DISORDER
     Dosage: 400 MG, QD
     Route: 048
     Dates: start: 20110225, end: 20110225

REACTIONS (9)
  - FLUSHING [None]
  - ANAPHYLACTIC REACTION [None]
  - DIARRHOEA [None]
  - HYPOTENSION [None]
  - OESOPHAGEAL SPASM [None]
  - SALIVARY HYPERSECRETION [None]
  - CHEST PAIN [None]
  - SWOLLEN TONGUE [None]
  - OXYGEN SATURATION DECREASED [None]
